FAERS Safety Report 25936721 (Version 1)
Quarter: 2025Q4

REPORT INFORMATION
  Report Type: Report from Study
  Country: US (occurrence: US)
  Receive Date: 20251017
  Receipt Date: 20251017
  Transmission Date: 20260117
  Serious: Yes (Death, Congenital Anomaly)
  Sender: ROCHE
  Company Number: US-ROCHE-10000413132

PATIENT

DRUGS (7)
  1. CELLCEPT [Suspect]
     Active Substance: MYCOPHENOLATE MOFETIL
     Indication: Product used for unknown indication
     Route: 064
     Dates: start: 202112, end: 20250410
  2. DEPO-PROVERA [Concomitant]
     Active Substance: MEDROXYPROGESTERONE ACETATE
     Dates: start: 20250309
  3. HYDROXYCHLOROQUINE [Concomitant]
     Active Substance: HYDROXYCHLOROQUINE
     Indication: Systemic lupus erythematosus
     Dates: start: 202112
  4. VOCLOSPORIN [Concomitant]
     Active Substance: VOCLOSPORIN
     Dates: start: 202203, end: 20250410
  5. AZATHIOPRINE [Concomitant]
     Active Substance: AZATHIOPRINE
     Dates: start: 20250410
  6. PREDNISONE [Concomitant]
     Active Substance: PREDNISONE
     Dates: start: 202112
  7. LOW DOSE ASPIRIN [Concomitant]
     Active Substance: ASPIRIN
     Dates: start: 20250625

REACTIONS (3)
  - Foetal exposure during pregnancy [Unknown]
  - Renal aplasia [Not Recovered/Not Resolved]
  - Foetal death [Fatal]

NARRATIVE: CASE EVENT DATE: 20250721
